FAERS Safety Report 7397003-4 (Version None)
Quarter: 2011Q1

REPORT INFORMATION
  Report Type: 
  Country: None (occurrence: None)
  Receive Date: 20110331
  Receipt Date: 20110331
  Transmission Date: 20110831
  Serious: Yes (Life-Threatening, Disabling)
  Sender: FDA-Public Use
  Company Number: None

PATIENT
  Age: 55 Year
  Sex: Female
  Weight: 79.3795 kg

DRUGS (1)
  1. CLOZAPINE [Suspect]
     Dosage: 300MG ONE HS ORAL
     Route: 048

REACTIONS (26)
  - TARDIVE DYSKINESIA [None]
  - PARAESTHESIA [None]
  - DYSKINESIA [None]
  - MOTOR DYSFUNCTION [None]
  - PAIN [None]
  - SKIN ULCER [None]
  - PUNCTURE SITE REACTION [None]
  - ABDOMINAL DISTENSION [None]
  - DERMATITIS ALLERGIC [None]
  - CARDIOVASCULAR DISORDER [None]
  - PARALYSIS [None]
  - RESPIRATORY TRACT CONGESTION [None]
  - TREMOR [None]
  - DIZZINESS [None]
  - MUSCLE SPASMS [None]
  - DENTAL CARIES [None]
  - GASTRIC PH INCREASED [None]
  - HEADACHE [None]
  - HYPOAESTHESIA [None]
  - DROOLING [None]
  - CONTUSION [None]
  - ARTHRALGIA [None]
  - PUNCTURE SITE PAIN [None]
  - VISION BLURRED [None]
  - MUSCLE TWITCHING [None]
  - THIRST [None]
